FAERS Safety Report 20345861 (Version 1)
Quarter: 2022Q1

REPORT INFORMATION
  Report Type: Spontaneous
  Country: IT (occurrence: None)
  Receive Date: 20220118
  Receipt Date: 20220118
  Transmission Date: 20220424
  Serious: No
  Sender: FDA-Public Use
  Company Number: IT-ROCHE-3002761

PATIENT
  Sex: Female

DRUGS (2)
  1. OCREVUS [Suspect]
     Active Substance: OCRELIZUMAB
     Indication: Multiple sclerosis
     Dosage: AFTER THE INITIAL DOSE 300+300 MG
     Route: 065
     Dates: end: 20210712
  2. PFIZER VACCINE (UNK INGREDIENTS) [Concomitant]
     Dates: start: 202107

REACTIONS (1)
  - COVID-19 [Unknown]
